APPROVED DRUG PRODUCT: OMEPRAZOLE
Active Ingredient: OMEPRAZOLE
Strength: 20MG
Dosage Form/Route: CAPSULE, DELAYED REL PELLETS;ORAL
Application: A078490 | Product #003 | TE Code: AB
Applicant: DR REDDYS LABORATORIES LTD
Approved: Mar 16, 2009 | RLD: No | RS: No | Type: RX